FAERS Safety Report 9798892 (Version 3)
Quarter: 2014Q1

REPORT INFORMATION
  Report Type: Spontaneous
  Country: IT (occurrence: None)
  Receive Date: 20131231
  Receipt Date: 20140224
  Transmission Date: 20141002
  Serious: Yes (Hospitalization)
  Sender: FDA-Public Use
  Company Number: AUR-APL-2013-10829

PATIENT
  Age: 100 Year
  Sex: Female

DRUGS (5)
  1. LEVOFLOXACIN (LEVOFLOXACIN) [Suspect]
     Indication: PNEUMONITIS
     Route: 048
     Dates: start: 20131203, end: 20131206
  2. CARDIOASPIRIN (ACETYLSALICYLIC ACID) [Concomitant]
  3. KARVEZIDE (KARVEA HCT) [Concomitant]
  4. TAVOR (LORAZEPAM) [Concomitant]
  5. SEROQUEL (QUETIAPINE FUMARATE) [Concomitant]

REACTIONS (1)
  - Epilepsy [None]
